FAERS Safety Report 10250423 (Version 2)
Quarter: 2014Q2

REPORT INFORMATION
  Report Type: Spontaneous
  Country: NL (occurrence: NL)
  Receive Date: 20140620
  Receipt Date: 20140620
  Transmission Date: 20141212
  Serious: Yes (Death)
  Sender: FDA-Public Use
  Company Number: NL-BAXTER-2014BAX026045

PATIENT
  Sex: Male

DRUGS (2)
  1. DIANEAL PD4 GLUCOSE 1.36%/13,6 MG/ML, PERITONEAALDIALYSEVLOEISTOF [Suspect]
     Indication: PERITONEAL DIALYSIS
     Route: 033
     Dates: end: 20140519
  2. EXTRANEAL, OPLOSSING VOOR PERITONEALE DIALYSE 75G/L [Suspect]
     Indication: PERITONEAL DIALYSIS
     Route: 033

REACTIONS (1)
  - Diverticular perforation [Fatal]
